FAERS Safety Report 20802627 (Version 1)
Quarter: 2022Q2

REPORT INFORMATION
  Report Type: Spontaneous
  Country: US (occurrence: None)
  Receive Date: 20220509
  Receipt Date: 20220509
  Transmission Date: 20220721
  Serious: Yes (Hospitalization)
  Sender: FDA-Public Use
  Company Number: None

PATIENT
  Age: 67 Year
  Sex: Male
  Weight: 96 kg

DRUGS (1)
  1. TRAMADOL HCL [Suspect]
     Active Substance: TRAMADOL HYDROCHLORIDE
     Indication: Pain
     Dosage: FREQUENCY : DAILY;?
     Route: 048
     Dates: start: 20220401, end: 20220410

REACTIONS (8)
  - Seizure [None]
  - Somnolence [None]
  - Malaise [None]
  - Generalised tonic-clonic seizure [None]
  - Postictal state [None]
  - Lung opacity [None]
  - Pleural effusion [None]
  - Alcoholic seizure [None]

NARRATIVE: CASE EVENT DATE: 20220410
